FAERS Safety Report 14745226 (Version 1)
Quarter: 2018Q2

REPORT INFORMATION
  Report Type: Spontaneous
  Country: FR (occurrence: FR)
  Receive Date: 20180411
  Receipt Date: 20180411
  Transmission Date: 20180711
  Serious: Yes (Other)
  Sender: FDA-Public Use
  Company Number: FR-MERCK KGAA-2045533

PATIENT
  Age: 69 Year
  Sex: Female

DRUGS (1)
  1. NOVOTHYROX [Suspect]
     Active Substance: LEVOTHYROXINE SODIUM
     Indication: POST PROCEDURAL HYPOTHYROIDISM

REACTIONS (30)
  - Stress [Not Recovered/Not Resolved]
  - Loss of personal independence in daily activities [None]
  - Amnesia [None]
  - Impatience [None]
  - Disturbance in attention [None]
  - Affect lability [Not Recovered/Not Resolved]
  - Tinnitus [None]
  - Fatigue [Not Recovered/Not Resolved]
  - Mental disorder [None]
  - Anger [None]
  - Mood swings [None]
  - Weight decreased [None]
  - Arrhythmia [None]
  - Osteoarthritis [Not Recovered/Not Resolved]
  - Nausea [None]
  - Psychiatric symptom [None]
  - Depression [None]
  - Nightmare [Recovering/Resolving]
  - Asthenia [None]
  - Blood thyroid stimulating hormone decreased [None]
  - Suicidal ideation [None]
  - Dizziness [None]
  - Agitation [None]
  - Anxiety [None]
  - Gait disturbance [None]
  - Morbid thoughts [None]
  - Headache [None]
  - Social avoidant behaviour [None]
  - Decreased appetite [None]
  - Insomnia [None]

NARRATIVE: CASE EVENT DATE: 2017
